FAERS Safety Report 9150464 (Version 6)
Quarter: 2013Q4

REPORT INFORMATION
  Report Type: Spontaneous
  Country: US (occurrence: None)
  Receive Date: 20130227
  Receipt Date: 20131030
  Transmission Date: 20140711
  Serious: Yes (Hospitalization)
  Sender: FDA-Public Use
  Company Number: 2013US001127

PATIENT
  Age: 62 Year
  Sex: Male
  Weight: 72 kg

DRUGS (18)
  1. PONATINIB [Suspect]
     Indication: CHRONIC MYELOID LEUKAEMIA
     Route: 048
     Dates: start: 20110608, end: 20120928
  2. COLACE [Concomitant]
  3. MARINOL [Concomitant]
  4. NICOTINE (NICOTINE) [Concomitant]
  5. OXYCODONE (OXYCODONE) [Concomitant]
  6. OXYCODONE HCL CONTROLLED RELEASE (OXYCODONE HYDROCHLORIDE) [Concomitant]
  7. ZOFRAN (ONDANSETRON) [Concomitant]
  8. AMITRIPTYLINE (AMITRIPTYLINE) [Concomitant]
  9. LYRICA (PREGABALIN) [Concomitant]
  10. ASA (ASA) [Concomitant]
  11. METOPROLOL (METOPROLOL TARTRATE) [Concomitant]
  12. SENNA [Concomitant]
  13. CIPRO (CIPROFLOXACIN) [Concomitant]
  14. VANCOMYCIN (VANCOMYCIN) [Concomitant]
  15. METRONIDAZOLE (METRONIDAZOLE) [Concomitant]
  16. CLOPIDOGREL (CLOPIDOGREL) [Concomitant]
  17. LORAZEPAM (LORAZEPAM) [Concomitant]
  18. DILAUDID (HYDROMORPHONE HYDROCHLORIDE) [Concomitant]

REACTIONS (39)
  - Neuropathy peripheral [None]
  - Condition aggravated [None]
  - Pain threshold decreased [None]
  - Refusal of treatment by patient [None]
  - Blood pressure systolic increased [None]
  - Blood glucose increased [None]
  - Haemoglobin decreased [None]
  - Prothrombin time prolonged [None]
  - Electrocardiogram T wave abnormal [None]
  - Affective disorder [None]
  - Peripheral vascular disorder [None]
  - Bone pain [None]
  - Neuralgia [None]
  - Pulse absent [None]
  - Thrombocytopenia [None]
  - Bone marrow failure [None]
  - Blood pressure increased [None]
  - Blood glucose increased [None]
  - Pain [None]
  - Paraesthesia [None]
  - Electrocardiogram ST segment depression [None]
  - Coronary artery disease [None]
  - Abdominal pain [None]
  - Splenic infarction [None]
  - Hallucination, visual [None]
  - Myocardial ischaemia [None]
  - Atelectasis [None]
  - Cholelithiasis [None]
  - Decreased appetite [None]
  - Skin ulcer [None]
  - Hypophagia [None]
  - Leukocytosis [None]
  - Nausea [None]
  - Vomiting [None]
  - Paranoid personality disorder [None]
  - Adjustment disorder [None]
  - Chronic myeloid leukaemia [None]
  - Malignant neoplasm progression [None]
  - Disease progression [None]
